FAERS Safety Report 25828076 (Version 2)
Quarter: 2025Q4

REPORT INFORMATION
  Report Type: Other
  Country: US (occurrence: US)
  Receive Date: 20250921
  Receipt Date: 20251118
  Transmission Date: 20260117
  Serious: No
  Sender: TRAVERE THERAPEUTICS
  Company Number: US-TRAVERE-2025TVT01441

PATIENT
  Sex: Male

DRUGS (1)
  1. FILSPARI [Suspect]
     Active Substance: SPARSENTAN
     Indication: IgA nephropathy
     Route: 048

REACTIONS (5)
  - Vision blurred [Recovered/Resolved]
  - Dizziness [Unknown]
  - Discomfort [Unknown]
  - Hypotension [Unknown]
  - Abdominal discomfort [Unknown]
